FAERS Safety Report 14314626 (Version 2)
Quarter: 2018Q1

REPORT INFORMATION
  Report Type: Report from Study
  Country: IT (occurrence: IT)
  Receive Date: 20171221
  Receipt Date: 20180316
  Transmission Date: 20180509
  Serious: Yes (Hospitalization, Other)
  Sender: FDA-Public Use
  Company Number: PHHO2017IT016295

PATIENT
  Age: 76 Year
  Sex: Male
  Weight: 79.7 kg

DRUGS (8)
  1. METFORMIN [Concomitant]
     Active Substance: METFORMIN HYDROCHLORIDE
     Indication: DIABETES MELLITUS
     Dosage: 100 MG, BID
     Route: 065
     Dates: start: 20130626, end: 20171122
  2. ACZ885 [Suspect]
     Active Substance: CANAKINUMAB
     Dosage: 300 MG, QUARTERLY
     Route: 058
     Dates: start: 20171024
  3. DILATREND [Concomitant]
     Active Substance: CARVEDILOL
     Indication: MYOCARDIAL INFARCTION
     Dosage: 6.25 MG, BID
     Route: 065
     Dates: start: 2003, end: 20171122
  4. FOLIACID [Concomitant]
     Indication: HYPERHOMOCYSTEINAEMIA
     Dosage: 20 MG, QD
     Route: 065
     Dates: start: 20151201, end: 20171122
  5. SIVASTIN [Concomitant]
     Active Substance: SIMVASTATIN
     Indication: DYSLIPIDAEMIA
     Dosage: 20 MG, QD
     Route: 065
     Dates: start: 20030615, end: 20171122
  6. ESOPRAL [Concomitant]
     Active Substance: ESOMEPRAZOLE MAGNESIUM
     Indication: PROPHYLAXIS AGAINST GASTROINTESTINAL ULCER
     Dosage: 40 MG, QD
     Route: 065
     Dates: start: 20030615, end: 20171122
  7. ACZ885 [Suspect]
     Active Substance: CANAKINUMAB
     Indication: CARDIOVASCULAR EVENT PROPHYLAXIS
     Dosage: 300 MG, QUARTERLY
     Route: 058
     Dates: end: 20170801
  8. BIFRIL [Concomitant]
     Active Substance: ZOFENOPRIL
     Indication: HYPERTENSION
     Dosage: 15 MG, QD
     Route: 065
     Dates: start: 20130615, end: 20171122

REACTIONS (1)
  - Pneumonia [Recovered/Resolved]

NARRATIVE: CASE EVENT DATE: 20171123
